FAERS Safety Report 6859420-8 (Version None)
Quarter: 2010Q3

REPORT INFORMATION
  Report Type: 
  Country: None (occurrence: None)
  Receive Date: 20100719
  Receipt Date: 20080227
  Transmission Date: 20110219
  Serious: No
  Sender: FDA-Public Use
  Company Number: US-PFIZER INC-2008020947

PATIENT
  Sex: Male
  Weight: 90.9 kg

DRUGS (4)
  1. CHANTIX [Suspect]
     Indication: SMOKING CESSATION THERAPY
     Dates: start: 20080211
  2. DIOVAN HCT [Concomitant]
  3. NEXIUM [Concomitant]
  4. OTHER HYPNOTICS AND SEDATIVES [Concomitant]

REACTIONS (5)
  - DYSPNOEA [None]
  - INSOMNIA [None]
  - NASAL DISCOMFORT [None]
  - NERVOUSNESS [None]
  - SINUS HEADACHE [None]
